FAERS Safety Report 21537724 (Version 1)
Quarter: 2022Q4

REPORT INFORMATION
  Report Type: Spontaneous
  Country: US (occurrence: US)
  Receive Date: 20221101
  Receipt Date: 20221101
  Transmission Date: 20230112
  Serious: No
  Sender: FDA-Public Use
  Company Number: US-SA-SAC20221025001091

PATIENT
  Sex: Female

DRUGS (1)
  1. SUTIMLIMAB-JOME [Suspect]
     Active Substance: SUTIMLIMAB-JOME
     Indication: Cold type haemolytic anaemia
     Route: 041

REACTIONS (1)
  - Urinary tract infection [Recovered/Resolved]
